FAERS Safety Report 4764906-6 (Version None)
Quarter: 2005Q3

REPORT INFORMATION
  Report Type: 
  Country: None (occurrence: None)
  Receive Date: 20050909
  Receipt Date: 20050830
  Transmission Date: 20060218
  Serious: Yes (Hospitalization)
  Sender: FDA-Public Use
  Company Number: FR-JNJFOC-20050900902

PATIENT
  Age: 70 Year
  Sex: Female

DRUGS (4)
  1. IXPRIM [Suspect]
     Indication: PAIN
     Route: 048
  2. CITALOPRAM HYDROBROMIDE [Suspect]
     Indication: DEPRESSION
     Route: 048
  3. PEGASYS [Suspect]
     Route: 058
  4. RIBAVIRIN [Concomitant]
     Route: 048

REACTIONS (6)
  - ARTHRALGIA [None]
  - BONE MARROW DISORDER [None]
  - HYPERHIDROSIS [None]
  - NEUTROPENIA [None]
  - PYREXIA [None]
  - THROMBOCYTOPENIA [None]
